FAERS Safety Report 8534939-2 (Version None)
Quarter: 2012Q3

REPORT INFORMATION
  Report Type: 
  Country: None (occurrence: None)
  Receive Date: 20120724
  Receipt Date: 19900319
  Transmission Date: 20120928
  Serious: Yes (Death)
  Sender: FDA-Public Use
  Company Number: US-ROCHE-1086818

PATIENT
  Sex: Female

DRUGS (1)
  1. ACTIVASE [Suspect]
     Indication: ACUTE MYOCARDIAL INFARCTION

REACTIONS (1)
  - DEATH [None]
